FAERS Safety Report 12710398 (Version 1)
Quarter: 2016Q3

REPORT INFORMATION
  Report Type: Spontaneous
  Country: US (occurrence: US)
  Receive Date: 20160902
  Receipt Date: 20160902
  Transmission Date: 20161109
  Serious: No
  Sender: FDA-Public Use
  Company Number: US-PFIZER INC-2016409107

PATIENT
  Age: 52 Year
  Sex: Male
  Weight: 69.84 kg

DRUGS (5)
  1. LYRICA [Suspect]
     Active Substance: PREGABALIN
     Indication: MYALGIA
     Dosage: 100 MG (1 CAPSULE), 3X/DAY
  2. LYRICA [Suspect]
     Active Substance: PREGABALIN
     Indication: PAIN
     Dosage: 100 MG, UNK (1 IN AM, 1 MID DAY, 2 AT BEDTIME)
     Route: 048
  3. ULTRAM [Concomitant]
     Active Substance: TRAMADOL HYDROCHLORIDE
     Dosage: 50 MG, UNK (0-2 PER DAY)
  4. ULTRAM [Concomitant]
     Active Substance: TRAMADOL HYDROCHLORIDE
     Indication: CERVICAL SPINAL STENOSIS
     Dosage: 50 MG, AS NEEDED (1 TABLET EVERY 12-24 HOURS)
     Route: 048
     Dates: start: 20160819
  5. NORFLEX [Concomitant]
     Active Substance: ORPHENADRINE CITRATE
     Indication: MYALGIA
     Dosage: 100 MG (1 TABLET), DAILY (AT BEDTIME)
     Route: 048

REACTIONS (9)
  - Drug ineffective [Unknown]
  - Activities of daily living impaired [Unknown]
  - Muscular weakness [Unknown]
  - Condition aggravated [Unknown]
  - Fall [Unknown]
  - Gait disturbance [Unknown]
  - Pain [Unknown]
  - Hypoaesthesia [Unknown]
  - Paraesthesia [Unknown]
